FAERS Safety Report 8308392-8 (Version None)
Quarter: 2012Q2

REPORT INFORMATION
  Report Type: 
  Country: None (occurrence: None)
  Receive Date: 20120424
  Receipt Date: 20120413
  Transmission Date: 20120825
  Serious: Yes (Hospitalization)
  Sender: FDA-Public Use
  Company Number: US-ROCHE-1059616

PATIENT
  Sex: Female

DRUGS (7)
  1. LISINOPRIL [Concomitant]
     Route: 065
  2. PEGINTERFERON ALFA-2A [Suspect]
     Indication: HEPATITIS C
     Route: 065
     Dates: start: 20120322
  3. TELAPREVIR [Suspect]
     Indication: HEPATITIS C
     Route: 065
     Dates: start: 20120322
  4. SPIRONOLACTONE [Concomitant]
     Route: 065
     Dates: start: 20120416
  5. FUROSEMIDE [Concomitant]
     Route: 065
     Dates: start: 20120416
  6. NADOLOL [Concomitant]
     Route: 065
     Dates: start: 20120416
  7. COPEGUS [Suspect]
     Indication: HEPATITIS C
     Dates: start: 20120322

REACTIONS (3)
  - PYREXIA [None]
  - PULMONARY OEDEMA [None]
  - DYSPNOEA [None]
